FAERS Safety Report 19847227 (Version 1)
Quarter: 2021Q3

REPORT INFORMATION
  Report Type: Spontaneous
  Country: US (occurrence: US)
  Receive Date: 20210917
  Receipt Date: 20210917
  Transmission Date: 20211014
  Serious: Yes (Other)
  Sender: FDA-Public Use
  Company Number: US-BRISTOL-MYERS SQUIBB COMPANY-BMS-2021-091887

PATIENT
  Age: 42 Year
  Sex: Male

DRUGS (2)
  1. OPIOIDS [Concomitant]
     Active Substance: UNSPECIFIED INGREDIENT
     Indication: PAIN
     Dosage: STOPPED 5 MONTHS AGO
     Route: 065
  2. ORENCIA [Suspect]
     Active Substance: ABATACEPT
     Indication: RHEUMATOID ARTHRITIS
     Dosage: Q4WK
     Route: 042
     Dates: start: 2021, end: 2021

REACTIONS (1)
  - Ejection fraction decreased [Unknown]
